FAERS Safety Report 22304936 (Version 1)
Quarter: 2023Q2

REPORT INFORMATION
  Report Type: Spontaneous
  Country: US (occurrence: None)
  Receive Date: 20230509
  Receipt Date: 20230509
  Transmission Date: 20230722
  Serious: No
  Sender: FDA-Public Use
  Company Number: None

PATIENT
  Age: 83 Year
  Sex: Male
  Weight: 77.56 kg

DRUGS (6)
  1. RETEVMO [Suspect]
     Active Substance: SELPERCATINIB
     Indication: Pancreatic carcinoma
     Dosage: FREQUENCY : TWICE A DAY;?
     Route: 048
     Dates: start: 202303, end: 20230508
  2. ALLOPURINOL [Concomitant]
  3. BISOPROLOL [Concomitant]
  4. CREON [Concomitant]
     Active Substance: PANCRELIPASE AMYLASE\PANCRELIPASE LIPASE\PANCRELIPASE PROTEASE
  5. PROVASTATIN [Concomitant]
  6. TAMSULOSIN [Concomitant]

REACTIONS (3)
  - Fatigue [None]
  - Renal disorder [None]
  - Full blood count abnormal [None]
